FAERS Safety Report 14768309 (Version 1)
Quarter: 2018Q2

REPORT INFORMATION
  Report Type: Spontaneous
  Country: US (occurrence: US)
  Receive Date: 20180410
  Receipt Date: 20180410
  Transmission Date: 20180711
  Serious: No
  Sender: FDA-Public Use
  Company Number: None

PATIENT
  Age: 72 Year
  Sex: Female
  Weight: 72.57 kg

DRUGS (5)
  1. OIL [Concomitant]
     Active Substance: MINERAL OIL
  2. VITAMIN D [Concomitant]
     Active Substance: CHOLECALCIFEROL
  3. AVASTIN [Suspect]
     Active Substance: BEVACIZUMAB
     Dates: start: 20171111
  4. ESTROGEN PATCH [Concomitant]
     Active Substance: ESTRADIOL
  5. CALCIUM [Concomitant]
     Active Substance: CALCIUM

REACTIONS (6)
  - Fatigue [None]
  - Asthenia [None]
  - Vitreous floaters [None]
  - Pain in jaw [None]
  - Temporomandibular joint syndrome [None]
  - Eye pain [None]
